FAERS Safety Report 24576405 (Version 1)
Quarter: 2024Q4

REPORT INFORMATION
  Report Type: Spontaneous
  Country: US (occurrence: US)
  Receive Date: 20241104
  Receipt Date: 20241104
  Transmission Date: 20250114
  Serious: Yes (Other)
  Sender: ORGANON
  Company Number: US-ORGANON-O2410USA002646

PATIENT
  Age: 32 Year
  Sex: Female
  Weight: 165.53 kg

DRUGS (1)
  1. NEXPLANON [Suspect]
     Active Substance: ETONOGESTREL
     Dosage: 1 IMPLANT LEFT UPPER ARM
     Route: 059
     Dates: start: 20241024

REACTIONS (3)
  - Device expulsion [Recovered/Resolved]
  - Wrong technique in product usage process [Unknown]
  - No adverse event [Unknown]

NARRATIVE: CASE EVENT DATE: 20241024
